FAERS Safety Report 5205484-7 (Version None)
Quarter: 2006Q4

REPORT INFORMATION
  Report Type: 
  Country: None (occurrence: None)
  Receive Date: 20061027
  Receipt Date: 20060328
  Transmission Date: 20070319
  Serious: Yes (Other)
  Sender: FDA-Public Use
  Company Number: HQWYE586930MAR06

PATIENT
  Age: 69 Year
  Sex: Female
  Weight: 69.92 kg

DRUGS (4)
  1. PREMARIN [Suspect]
     Indication: OESTROGEN REPLACEMENT THERAPY
     Dosage: 0.625 MG DAILY TO 3 TIMES PER WEEK, ORAL
     Route: 048
     Dates: start: 19870101
  2. MULTIPLE VITAMINS (ASCORBIC ACID/ERGOCALCIFEROL/FOLIC ACID/RETINOL/TOC [Concomitant]
  3. HYDROCHLOROTHIAZIDE [Concomitant]
  4. ATENOLOL [Concomitant]

REACTIONS (2)
  - DRUG INEFFECTIVE [None]
  - PHARMACEUTICAL PRODUCT COMPLAINT [None]
